FAERS Safety Report 10903420 (Version 1)
Quarter: 2015Q1

REPORT INFORMATION
  Report Type: Spontaneous
  Country: CA (occurrence: None)
  Receive Date: 20150304
  Receipt Date: 20150304
  Transmission Date: 20150721
  Serious: Yes (Hospitalization)
  Sender: FDA-Public Use
  Company Number: 2015HINLIT0204

PATIENT
  Age: 61 Year
  Sex: Male

DRUGS (1)
  1. LITHIUM [Suspect]
     Active Substance: LITHIUM CARBONATE
     Indication: PRODUCT USED FOR UNKNOWN INDICATION
     Dosage: 90 MD DAILY (PLASMATIC LEVEL 0.6 MMOL/L)

REACTIONS (2)
  - Tremor [None]
  - Posture abnormal [None]
